FAERS Safety Report 12257996 (Version 1)
Quarter: 2016Q2

REPORT INFORMATION
  Report Type: Spontaneous
  Country: ES (occurrence: ES)
  Receive Date: 20160412
  Receipt Date: 20160412
  Transmission Date: 20160815
  Serious: Yes (Hospitalization, Congenital Anomaly, Other)
  Sender: FDA-Public Use
  Company Number: ES-ABBVIE-15P-144-1505627-00

PATIENT
  Sex: Male

DRUGS (1)
  1. DEPAKINE [Suspect]
     Active Substance: VALPROATE SODIUM
     Indication: MATERNAL EXPOSURE TIMING UNSPECIFIED
     Route: 064

REACTIONS (8)
  - Foetal exposure during pregnancy [Unknown]
  - Tachypnoea [Unknown]
  - Developmental delay [Not Recovered/Not Resolved]
  - Hypospadias [Unknown]
  - Atrial septal defect [Unknown]
  - Autism spectrum disorder [Not Recovered/Not Resolved]
  - Bronchitis [Recovered/Resolved]
  - Pulmonary artery stenosis [Recovered/Resolved]
